FAERS Safety Report 9002881 (Version 1)
Quarter: 2012Q4

REPORT INFORMATION
  Report Type: Spontaneous
  Country: JP (occurrence: None)
  Receive Date: 20121226
  Receipt Date: 20121226
  Transmission Date: 20130627
  Serious: Yes (Hospitalization)
  Sender: FDA-Public Use
  Company Number: AXC-2012-000592

PATIENT
  Age: 49 Year
  Sex: Female

DRUGS (5)
  1. URSODEOXYCHOLIC ACID [Suspect]
     Indication: HEPATIC FUNCTION ABNORMAL
     Route: 048
  2. GLYCYRRHIZIC ACID [Suspect]
     Indication: HEPATIC FUNCTION ABNORMAL
  3. OMEPRAL /00661202/ (OMEPRAZOLE SODIUM) INFUSION [Suspect]
     Indication: PRODUCT USED FOR UNKNOWN INDICATION
     Route: 051
  4. CIMETIDINE [Concomitant]
  5. LANSOPRAZOLE (LANSOPRAZOLE) [Concomitant]

REACTIONS (12)
  - Renal tubular acidosis [None]
  - Oedema peripheral [None]
  - Hyperventilation [None]
  - Metabolic acidosis [None]
  - Secondary aldosteronism [None]
  - Polyuria [None]
  - Muscular weakness [None]
  - Hypokalaemia [None]
  - Fatigue [None]
  - Polydipsia [None]
  - Hepatitis chronic active [None]
  - Autoimmune hepatitis [None]
